FAERS Safety Report 5468562-3 (Version None)
Quarter: 2007Q3

REPORT INFORMATION
  Report Type: 
  Country: None (occurrence: None)
  Receive Date: 20070926
  Receipt Date: 20070917
  Transmission Date: 20080115
  Serious: Yes (Other)
  Sender: FDA-Public Use
  Company Number: US-KINGPHARMUSA00001-K200701199

PATIENT

DRUGS (9)
  1. FLORINEF [Suspect]
     Indication: ADRENALECTOMY
     Dosage: 5 TABS, QD
     Dates: start: 20040101
  2. HYDROCORTISONE [Concomitant]
  3. PANCREAS POWDER [Concomitant]
  4. TARGIN [Concomitant]
  5. BISOHEXAL  /00802603/ [Concomitant]
  6. ASPIRIN [Concomitant]
  7. AMLODIPINE [Concomitant]
  8. RANIBETA   /00550801/ [Concomitant]
  9. INSIDON [Concomitant]

REACTIONS (2)
  - SWELLING FACE [None]
  - WEIGHT INCREASED [None]
